FAERS Safety Report 8882275 (Version 2)
Quarter: 2012Q4

REPORT INFORMATION
  Report Type: 
  Country: US (occurrence: US)
  Receive Date: 20121102
  Receipt Date: 20121126
  Transmission Date: 20130627
  Serious: No
  Sender: FDA-Public Use
  Company Number: US-VERTEX PHARMACEUTICAL INC.-2012-023847

PATIENT
  Sex: Male
  Weight: 84 kg

DRUGS (10)
  1. VX-950 (TELAPREVIR) [Suspect]
     Indication: HEPATITIS C
     Dosage: 750 mg, tid
     Route: 048
     Dates: start: 2012
  2. PEGASYS [Concomitant]
     Indication: HEPATITIS C
     Dosage: 180 ?g, qw
     Route: 058
     Dates: start: 2012
  3. RIBASPHERE [Concomitant]
     Indication: HEPATITIS C
     Dosage: 600 mg, bid
     Route: 048
     Dates: start: 2012
  4. ZOLOFT [Concomitant]
  5. NEXIUM                             /01479302/ [Concomitant]
     Dosage: UNK, qd
  6. ALPRAZOLAM [Concomitant]
  7. ALLOPURINOL [Concomitant]
     Dosage: 100 mg, qd
  8. CHLORTHALIDONE [Concomitant]
     Dosage: 25 mg, qd
  9. OXYCODONE-ACETAMINOPHEN [Concomitant]
     Dosage: 10-325
  10. IBUPROFEN [Concomitant]
     Dosage: UNK, prn

REACTIONS (7)
  - Somnolence [Unknown]
  - Feeling abnormal [Unknown]
  - Constipation [Unknown]
  - Decreased appetite [Unknown]
  - Asthenia [Unknown]
  - Anorectal discomfort [Unknown]
  - Nausea [Unknown]
